FAERS Safety Report 23241786 (Version 3)
Quarter: 2024Q2

REPORT INFORMATION
  Report Type: Spontaneous
  Country: CA (occurrence: CA)
  Receive Date: 20231129
  Receipt Date: 20240401
  Transmission Date: 20240716
  Serious: Yes (Other)
  Sender: FDA-Public Use
  Company Number: CA-SA-SAC20231127000731

PATIENT
  Age: 59 Year
  Sex: Female

DRUGS (16)
  1. CLOPIDOGREL BISULFATE [Suspect]
     Active Substance: CLOPIDOGREL BISULFATE
     Indication: Product used for unknown indication
     Dosage: UNK
     Route: 048
     Dates: start: 20230217
  2. AMOXICILLIN\CLAVULANATE POTASSIUM [Suspect]
     Active Substance: AMOXICILLIN\CLAVULANATE POTASSIUM
     Indication: Product used for unknown indication
     Dosage: UNK
     Route: 048
     Dates: start: 20220829
  3. PANTOPRAZOLE [Suspect]
     Active Substance: PANTOPRAZOLE
     Indication: Product used for unknown indication
     Dosage: UNK
     Route: 048
     Dates: start: 20230217
  4. ROSUVASTATIN CALCIUM [Suspect]
     Active Substance: ROSUVASTATIN CALCIUM
     Indication: Product used for unknown indication
     Dosage: UNK
     Route: 048
     Dates: start: 20230217
  5. MOMETASONE [Suspect]
     Active Substance: MOMETASONE
     Indication: Product used for unknown indication
     Dosage: UNK
     Route: 055
     Dates: start: 20210927
  6. VALACYCLOVIR HYDROCHLORIDE [Suspect]
     Active Substance: VALACYCLOVIR HYDROCHLORIDE
     Indication: Product used for unknown indication
     Dosage: UNK
     Route: 048
     Dates: start: 20220927
  7. ZOVIRAX [Concomitant]
     Active Substance: ACYCLOVIR
     Indication: Product used for unknown indication
     Dosage: UNK
     Route: 061
     Dates: start: 20220927
  8. CEPHALEXIN MONOHYDRATE [Concomitant]
     Active Substance: CEPHALEXIN MONOHYDRATE
     Indication: Product used for unknown indication
     Dosage: UNK
     Route: 048
     Dates: start: 20210616
  9. CEPHALEXIN MONOHYDRATE [Concomitant]
     Active Substance: CEPHALEXIN MONOHYDRATE
  10. DICLOFENAC SODIUM [Concomitant]
     Active Substance: DICLOFENAC\DICLOFENAC SODIUM
     Indication: Product used for unknown indication
     Dosage: UNK
     Route: 048
     Dates: start: 20210816
  11. ELIDEL [Concomitant]
     Active Substance: PIMECROLIMUS
     Indication: Product used for unknown indication
     Dosage: UNK
     Route: 061
     Dates: start: 20220427
  12. INFLIXIMAB [Concomitant]
     Active Substance: INFLIXIMAB
     Dosage: UNK
     Route: 042
  13. SIMPONI [Concomitant]
     Active Substance: GOLIMUMAB
     Dosage: UNK
     Route: 058
  14. MORPHINE SULFATE [Concomitant]
     Active Substance: MORPHINE SULFATE
     Indication: Product used for unknown indication
     Dosage: UNK
     Route: 048
     Dates: start: 20211004
  15. VENTOLIN [Concomitant]
     Active Substance: ALBUTEROL SULFATE
     Indication: Product used for unknown indication
     Dosage: UNK
     Route: 055
     Dates: start: 20210809
  16. XELJANZ [Concomitant]
     Active Substance: TOFACITINIB CITRATE
     Dosage: UNK

REACTIONS (1)
  - Cerebrovascular accident [Unknown]

NARRATIVE: CASE EVENT DATE: 20230201
